FAERS Safety Report 8935193 (Version 1)
Quarter: 2012Q4

REPORT INFORMATION
  Report Type: 
  Country: US (occurrence: US)
  Receive Date: 20121129
  Receipt Date: 20121129
  Transmission Date: 20130627
  Serious: Yes (Hospitalization)
  Sender: FDA-Public Use
  Company Number: US-009507513-1211USA010838

PATIENT
  Age: 68 Year
  Sex: Female

DRUGS (2)
  1. JANUMET [Suspect]
     Dosage: 50/500 mg, bid
     Route: 048
     Dates: start: 201011
  2. INSULIN [Concomitant]

REACTIONS (1)
  - Pancreatitis [Recovering/Resolving]
